FAERS Safety Report 5126594-9 (Version None)
Quarter: 2006Q4

REPORT INFORMATION
  Report Type: 
  Country: None (occurrence: None)
  Receive Date: 20061012
  Receipt Date: 20061012
  Transmission Date: 20070319
  Serious: Yes (Life-Threatening, Hospitalization)
  Sender: FDA-Public Use
  Company Number: None

PATIENT
  Sex: Male

DRUGS (3)
  1. MOXIFLOXACIN HCL [Suspect]
     Indication: BRONCHITIS
     Dosage: 400 MG DAILY PO
     Route: 048
     Dates: start: 20060724, end: 20060727
  2. CEFEPIME [Suspect]
     Indication: BRONCHITIS
     Dosage: 1 GRAM Q12H IV
     Route: 042
     Dates: start: 20060727, end: 20060807
  3. VANCOMYCIN [Concomitant]

REACTIONS (2)
  - CLOSTRIDIUM DIFFICILE COLITIS [None]
  - COLECTOMY [None]
